FAERS Safety Report 24101475 (Version 2)
Quarter: 2024Q3

REPORT INFORMATION
  Report Type: Spontaneous
  Country: DE (occurrence: DE)
  Receive Date: 20240717
  Receipt Date: 20240725
  Transmission Date: 20241016
  Serious: Yes (Hospitalization)
  Sender: ALKEM
  Company Number: None

PATIENT
  Age: 12 Year
  Sex: Female
  Weight: 35.5 kg

DRUGS (4)
  1. CEFUROXIME AXETIL [Suspect]
     Active Substance: CEFUROXIME AXETIL
     Indication: Product used for unknown indication
     Dosage: UNK
     Route: 065
  2. UNSPECIFIED INGREDIENT [Suspect]
     Active Substance: UNSPECIFIED INGREDIENT
     Indication: Crohn^s disease
     Dosage: 300 MILLIGRAM
     Route: 042
     Dates: start: 20100617, end: 20110825
  3. UNSPECIFIED INGREDIENT [Suspect]
     Active Substance: UNSPECIFIED INGREDIENT
     Dosage: 250 MILLIGRAM, (POWDER FOR INJECTION)
     Route: 042
     Dates: start: 20100415, end: 20100517
  4. UNSPECIFIED INGREDIENT [Suspect]
     Active Substance: UNSPECIFIED INGREDIENT
     Dosage: 200 MILLIGRAM (EVERY 4 WEEK)
     Route: 042
     Dates: start: 20090702, end: 20100318

REACTIONS (14)
  - Lymphadenitis [Recovered/Resolved]
  - Aphthous ulcer [Recovered/Resolved]
  - Bacterial disease carrier [Recovered/Resolved]
  - Eating disorder [Recovered/Resolved]
  - Haematuria [Recovered/Resolved]
  - Herpes simplex [Recovered/Resolved]
  - Hypovolaemia [Recovered/Resolved]
  - Leukocyturia [Recovered/Resolved]
  - Paronychia [Recovered/Resolved]
  - Sinusitis [Recovered/Resolved]
  - Zinc deficiency [Recovered/Resolved]
  - Pruritus [Recovered/Resolved]
  - Vomiting [Recovered/Resolved]
  - Rash [Recovered/Resolved]

NARRATIVE: CASE EVENT DATE: 20101102
